FAERS Safety Report 19417025 (Version 2)
Quarter: 2021Q2

REPORT INFORMATION
  Report Type: Spontaneous
  Country: US (occurrence: US)
  Receive Date: 20210614
  Receipt Date: 20210624
  Transmission Date: 20210717
  Serious: No
  Sender: FDA-Public Use
  Company Number: US-SA-2021SA191796

PATIENT
  Sex: Female

DRUGS (1)
  1. XYZAL ALLERGY 24HR [Suspect]
     Active Substance: LEVOCETIRIZINE DIHYDROCHLORIDE
     Indication: HYPERSENSITIVITY
     Dosage: UNK (1 TABLET)
     Route: 065

REACTIONS (4)
  - Product physical consistency issue [Unknown]
  - Product label issue [Unknown]
  - Drug ineffective [Unknown]
  - Product taste abnormal [Unknown]
